FAERS Safety Report 6424834-7 (Version None)
Quarter: 2009Q4

REPORT INFORMATION
  Report Type: 
  Country: None (occurrence: None)
  Receive Date: 20091103
  Receipt Date: 20091020
  Transmission Date: 20100525
  Serious: Yes (Hospitalization, Other)
  Sender: FDA-Public Use
  Company Number: PHHY2009IE45796

PATIENT
  Sex: Female

DRUGS (2)
  1. CLOZARIL [Suspect]
     Indication: SCHIZOPHRENIA
     Dosage: UNK
     Dates: start: 20011206
  2. CLOZARIL [Suspect]
     Dosage: 300 MG, UNK
     Route: 048
     Dates: end: 20091020

REACTIONS (11)
  - BODY TEMPERATURE INCREASED [None]
  - COUGH [None]
  - CYSTITIS [None]
  - EXTRAPYRAMIDAL DISORDER [None]
  - KIDNEY INFECTION [None]
  - NEUTROPENIA [None]
  - OROPHARYNGEAL PAIN [None]
  - SCHIZOPHRENIA [None]
  - URINARY INCONTINENCE [None]
  - VIRAL INFECTION [None]
  - WHITE BLOOD CELL COUNT DECREASED [None]
